FAERS Safety Report 4625163-4 (Version None)
Quarter: 2005Q1

REPORT INFORMATION
  Report Type: 
  Country: None (occurrence: None)
  Receive Date: 20050325
  Receipt Date: 20050125
  Transmission Date: 20050727
  Serious: No
  Sender: FDA-Public Use
  Company Number: USA050189155

PATIENT
  Age: 65 Year
  Sex: Female

DRUGS (3)
  1. FORTEO [Suspect]
     Indication: OSTEOPOROSIS
     Dosage: 20 UG/1 IN THE MORNING
     Dates: start: 20040401
  2. ASACOL [Concomitant]
  3. OSCAL (CALCIUM CARBONATE) [Concomitant]

REACTIONS (2)
  - LIVER FUNCTION TEST ABNORMAL [None]
  - WEIGHT INCREASED [None]
